FAERS Safety Report 12581228 (Version 2)
Quarter: 2016Q3

REPORT INFORMATION
  Report Type: Spontaneous
  Country: AU (occurrence: AU)
  Receive Date: 20160721
  Receipt Date: 20160802
  Transmission Date: 20161109
  Serious: Yes (Other)
  Sender: FDA-Public Use
  Company Number: AU-ALLERGAN-1663252US

PATIENT
  Age: 47 Year
  Sex: Female

DRUGS (11)
  1. CIPROFLOXACIN. [Concomitant]
     Active Substance: CIPROFLOXACIN
     Indication: KERATITIS
     Dosage: UNK UNK, Q1HR
     Route: 047
  2. TOBRAMYCIN. [Concomitant]
     Active Substance: TOBRAMYCIN
     Indication: KERATITIS
     Dosage: UNK UNK, Q1HR
     Route: 047
  3. HOMATROPINE [Concomitant]
     Active Substance: HOMATROPINE\HOMATROPINE HYDROBROMIDE
     Indication: KERATITIS
     Dosage: 3 GTT, QD
     Route: 047
  4. PREDNISOLONE UNK [Suspect]
     Active Substance: PREDNISOLONE
     Dosage: 2 GTT, Q1HR
     Route: 047
  5. COTRIMOXAZOLE [Concomitant]
     Active Substance: SULFAMETHOXAZOLE\TRIMETHOPRIM
     Indication: KERATITIS
     Dosage: UNK UNK, BID
     Route: 048
  6. CHLORAMPHENICOL [Concomitant]
     Active Substance: CHLORAMPHENICOL
     Indication: KERATITIS
     Dosage: UNK UNK, Q1HR
     Route: 047
  7. PREDNISOLONE UNK [Suspect]
     Active Substance: PREDNISOLONE
     Indication: KERATITIS
     Dosage: SIX TIMES PER DAY
     Route: 047
  8. IRBESARTAN. [Concomitant]
     Active Substance: IRBESARTAN
     Indication: HYPERTENSION
  9. GENTAMICIN. [Concomitant]
     Active Substance: GENTAMICIN
     Indication: KERATITIS
     Dosage: UNK UNK, Q1HR
     Route: 047
  10. AMIKACIN [Concomitant]
     Active Substance: AMIKACIN
     Indication: KERATITIS
     Dosage: UNK UNK, Q1HR
     Route: 047
  11. ATROPINE. [Concomitant]
     Active Substance: ATROPINE
     Indication: KERATITIS
     Dosage: UNK UNK, TID
     Route: 047

REACTIONS (5)
  - Ocular discomfort [Unknown]
  - Incorrect drug administration duration [Unknown]
  - Keratitis bacterial [Recovered/Resolved]
  - Photophobia [Unknown]
  - Erythema [Unknown]
